FAERS Safety Report 23874985 (Version 1)
Quarter: 2024Q2

REPORT INFORMATION
  Report Type: Spontaneous
  Country: FR (occurrence: FR)
  Receive Date: 20240520
  Receipt Date: 20240520
  Transmission Date: 20240717
  Serious: Yes (Hospitalization)
  Sender: FDA-Public Use
  Company Number: FR-002147023-NVSC2024FR104097

PATIENT
  Age: 70 Year
  Sex: Male
  Weight: 56 kg

DRUGS (15)
  1. LORAZEPAM [Suspect]
     Active Substance: LORAZEPAM
     Indication: Anxiety
     Dosage: 1.5 MG, QD
     Route: 065
     Dates: start: 20240127, end: 20240130
  2. LORAZEPAM [Suspect]
     Active Substance: LORAZEPAM
     Dosage: 2 MG, QD
     Route: 065
     Dates: start: 20240130, end: 20240206
  3. LORAZEPAM [Suspect]
     Active Substance: LORAZEPAM
     Dosage: 2.5 MG, QD
     Route: 065
     Dates: start: 20240206, end: 20240208
  4. LORAZEPAM [Suspect]
     Active Substance: LORAZEPAM
     Dosage: 3 MG, QD
     Route: 065
     Dates: start: 20240208, end: 20240211
  5. LORAZEPAM [Suspect]
     Active Substance: LORAZEPAM
     Dosage: 3.5 MG, QD
     Route: 065
     Dates: start: 20240211
  6. MIRTAZAPINE [Suspect]
     Active Substance: MIRTAZAPINE
     Indication: Depression
     Dosage: 15 MG, QD
     Route: 065
     Dates: start: 20240115, end: 20240130
  7. MIRTAZAPINE [Suspect]
     Active Substance: MIRTAZAPINE
     Dosage: 30 MG, QD
     Route: 065
     Dates: start: 20240130
  8. BENSERAZIDE HYDROCHLORIDE\LEVODOPA [Suspect]
     Active Substance: BENSERAZIDE HYDROCHLORIDE\LEVODOPA
     Indication: Parkinson^s disease
     Dosage: 2 DOSAGE FORM, QD
     Route: 065
     Dates: start: 201701
  9. BENSERAZIDE HYDROCHLORIDE\LEVODOPA [Suspect]
     Active Substance: BENSERAZIDE HYDROCHLORIDE\LEVODOPA
     Dosage: 3 DOSAGE FORM, QD
     Route: 065
     Dates: start: 201701, end: 20240131
  10. BENSERAZIDE HYDROCHLORIDE\LEVODOPA [Suspect]
     Active Substance: BENSERAZIDE HYDROCHLORIDE\LEVODOPA
     Dosage: 4 DOSAGE FORM, QD
     Route: 065
     Dates: start: 20240131
  11. QUETIAPINE [Suspect]
     Active Substance: QUETIAPINE
     Dosage: 100 MG, QD
     Route: 065
     Dates: start: 20240207
  12. QUETIAPINE [Suspect]
     Active Substance: QUETIAPINE
     Indication: Depression
     Dosage: 50 MG, QD
     Route: 065
     Dates: start: 20240130, end: 20240207
  13. STALEVO [Suspect]
     Active Substance: CARBIDOPA\ENTACAPONE\LEVODOPA
     Indication: Parkinson^s disease
     Dosage: 1 DOSAGE FORM, QD (175/43.75/200 MG)
     Route: 065
     Dates: start: 202201, end: 20240131
  14. EZETIMIBE\SIMVASTATIN [Concomitant]
     Active Substance: EZETIMIBE\SIMVASTATIN
     Indication: Product used for unknown indication
     Dosage: UNK (COMPRESSED)
     Route: 065
  15. RAMIPRIL [Concomitant]
     Active Substance: RAMIPRIL
     Indication: Product used for unknown indication
     Dosage: UNK
     Route: 065

REACTIONS (2)
  - Aggression [Recovered/Resolved]
  - Confusional state [Recovered/Resolved]

NARRATIVE: CASE EVENT DATE: 20240128
